FAERS Safety Report 15837768 (Version 1)
Quarter: 2018Q4

REPORT INFORMATION
  Report Type: Spontaneous
  Country: US (occurrence: US)
  Receive Date: 20181223
  Receipt Date: 20181223
  Transmission Date: 20190205
  Serious: No
  Sender: FDA-Public Use
  Company Number: None

PATIENT
  Age: 63 Year
  Sex: Female

DRUGS (3)
  1. FASLODEX [Suspect]
     Active Substance: FULVESTRANT
  2. IBRANCE [Suspect]
     Active Substance: PALBOCICLIB
     Dates: start: 201808
  3. XGEVA [Suspect]
     Active Substance: DENOSUMAB

REACTIONS (2)
  - Blood potassium increased [None]
  - Blood magnesium increased [None]

NARRATIVE: CASE EVENT DATE: 20181223
